FAERS Safety Report 6508130-5 (Version None)
Quarter: 2009Q4

REPORT INFORMATION
  Report Type: 
  Country: None (occurrence: None)
  Receive Date: 20091221
  Receipt Date: 20091218
  Transmission Date: 20100525
  Serious: Yes (Hospitalization)
  Sender: FDA-Public Use
  Company Number: PHHO2008CL07080

PATIENT
  Sex: Male
  Weight: 108 kg

DRUGS (4)
  1. STARLIX [Suspect]
     Dosage: CODE NOT BROKEN
     Route: 048
     Dates: start: 20030409
  2. STARLIX [Suspect]
     Dosage: CODE NOT BROKEN
  3. PLACEBO PLACEBO [Suspect]
     Indication: CARDIOVASCULAR DISORDER
     Dosage: LEVEL 1
     Route: 048
     Dates: start: 20030409
  4. PLACEBO PLACEBO [Suspect]
     Dosage: LEVEL 2
     Route: 048

REACTIONS (6)
  - ACUTE MYOCARDIAL INFARCTION [None]
  - CHEST PAIN [None]
  - CORONARY ARTERY DISEASE [None]
  - CORONARY ARTERY STENOSIS [None]
  - DISEASE PROGRESSION [None]
  - SURGERY [None]
